FAERS Safety Report 8502412-3 (Version None)
Quarter: 2012Q3

REPORT INFORMATION
  Report Type: 
  Country: None (occurrence: None)
  Receive Date: 20120711
  Receipt Date: 20120706
  Transmission Date: 20120928
  Serious: Yes (Hospitalization)
  Sender: FDA-Public Use
  Company Number: PHHY2012IT058572

PATIENT
  Sex: Female

DRUGS (11)
  1. SIMESTAT [Concomitant]
     Dosage: 20 MG, UNK
     Route: 048
  2. PROMAZINE HYDROCHLORIDE [Concomitant]
     Dosage: 10 DF,  (4 G\100ML)
  3. TEGRETOL [Suspect]
     Indication: BIPOLAR DISORDER
     Dosage: 400 MG DAILY
     Route: 048
     Dates: start: 20110101, end: 20120301
  4. XANAX [Concomitant]
     Dosage: 3 MG, UNK
     Route: 048
  5. LENDORMIN [Concomitant]
     Dosage: 0.25 MG, UNK
     Route: 048
  6. PANTOPRAZOLE SODIUM [Concomitant]
     Dosage: 20 MG, UNK
     Route: 048
  7. ASPIRIN [Concomitant]
     Dosage: 100 MG, UNK
     Route: 048
  8. ARCOXIA [Concomitant]
     Dosage: 120 MG, UNK
     Route: 048
  9. ATENOLOL [Concomitant]
  10. VALPRESSION [Concomitant]
     Dosage: 160 MG, UNK
     Route: 048
  11. ENTUMIN [Concomitant]
     Dosage: 10 DRP, UNK
     Route: 048

REACTIONS (4)
  - HYPONATRAEMIA [None]
  - NEUROPATHY PERIPHERAL [None]
  - ASTHENIA [None]
  - VERTIGO [None]
